FAERS Safety Report 15879101 (Version 1)
Quarter: 2019Q1

REPORT INFORMATION
  Report Type: Spontaneous
  Country: US (occurrence: US)
  Receive Date: 20190128
  Receipt Date: 20190128
  Transmission Date: 20190417
  Serious: No
  Sender: FDA-Public Use
  Company Number: US-009507513-1901USA009383

PATIENT
  Age: 17 Year
  Sex: Female
  Weight: 60.86 kg

DRUGS (1)
  1. NEXPLANON [Suspect]
     Active Substance: ETONOGESTREL
     Dosage: 68 MILLIGRAM, IMPLANT
     Route: 059
     Dates: start: 20181031

REACTIONS (3)
  - Device kink [Not Recovered/Not Resolved]
  - Discomfort [Unknown]
  - Implant site pain [Unknown]

NARRATIVE: CASE EVENT DATE: 20190116
